FAERS Safety Report 10885627 (Version 2)
Quarter: 2015Q1

REPORT INFORMATION
  Report Type: Spontaneous
  Country: US (occurrence: US)
  Receive Date: 20150304
  Receipt Date: 20150325
  Transmission Date: 20150721
  Serious: No
  Sender: FDA-Public Use
  Company Number: US-EISAI MEDICAL RESEARCH-EC-2015-004472

PATIENT
  Age: 47 Year
  Sex: Female
  Weight: 92.6 kg

DRUGS (1)
  1. BELVIQ [Suspect]
     Active Substance: LORCASERIN HYDROCHLORIDE
     Indication: OBESITY
     Route: 048
     Dates: start: 20141228, end: 20150110

REACTIONS (3)
  - Constipation [Recovered/Resolved]
  - Headache [Recovered/Resolved]
  - Gambling [Recovered/Resolved]

NARRATIVE: CASE EVENT DATE: 20150103
